FAERS Safety Report 7583834-4 (Version None)
Quarter: 2011Q2

REPORT INFORMATION
  Report Type: 
  Country: None (occurrence: None)
  Receive Date: 20110531
  Receipt Date: 20100910
  Transmission Date: 20111010
  Serious: Yes (Other)
  Sender: FDA-Public Use
  Company Number: 310654

PATIENT
  Age: 59 Year
  Sex: Female
  Weight: 67.1 kg

DRUGS (4)
  1. PREMPRO [Suspect]
     Indication: MENOPAUSAL SYMPTOMS
     Dosage: 0.625 - 2.5 MG ORAL ; 0.45 - 1.5 MG
     Route: 048
     Dates: start: 19960101, end: 20080101
  2. XANAX [Concomitant]
  3. NORVASC [Concomitant]
  4. ACTIVELLA [Suspect]
     Indication: MENOPAUSAL SYMPTOMS
     Dosage: 1 - .5 MG, ORAL
     Route: 048
     Dates: start: 20030101, end: 20070101

REACTIONS (1)
  - BREAST CANCER [None]
